FAERS Safety Report 5809652-2 (Version None)
Quarter: 2008Q3

REPORT INFORMATION
  Report Type: 
  Country: None (occurrence: None)
  Receive Date: 20080709
  Receipt Date: 20080626
  Transmission Date: 20090109
  Serious: Yes (Life-Threatening, Hospitalization)
  Sender: FDA-Public Use
  Company Number: 2008AL007804

PATIENT
  Age: 66 Year
  Sex: Male

DRUGS (16)
  1. DICLOFENAC SODIUM [Suspect]
     Indication: GOUT
     Dosage: 50 MG; BID;
     Dates: start: 20080605, end: 20080607
  2. ATORVASTATIN CALCIUM [Concomitant]
  3. EZETIMIBE [Concomitant]
  4. METFORMIN HCL [Concomitant]
  5. ACETYLSALICYLIC ACID SRT [Concomitant]
  6. DOXAZOSIN MESYLATE [Concomitant]
  7. LANSOPRAZOLE [Concomitant]
  8. PREGABALIN [Concomitant]
  9. ATENOLOL [Concomitant]
  10. ALLOPURINOL [Concomitant]
  11. TADALAFIL [Concomitant]
  12. FUROSEMIDE [Concomitant]
  13. FERROUS SULFATE TAB [Concomitant]
  14. PERINDOPRIL ERBUMINE [Concomitant]
  15. ACETAMINOPHEN [Concomitant]
  16. DIHYDROCODEINE [Concomitant]

REACTIONS (6)
  - BLOOD CREATINE PHOSPHOKINASE INCREASED [None]
  - BLOOD POTASSIUM INCREASED [None]
  - FALL [None]
  - GLASGOW COMA SCALE ABNORMAL [None]
  - MALAISE [None]
  - METABOLIC ACIDOSIS [None]
